FAERS Safety Report 5590142-X (Version None)
Quarter: 2008Q1

REPORT INFORMATION
  Report Type: 
  Country: None (occurrence: None)
  Receive Date: 20080114
  Receipt Date: 20070627
  Transmission Date: 20080703
  Serious: Yes (Hospitalization)
  Sender: FDA-Public Use
  Company Number: US-ABBOTT-07P-163-0366202-00

PATIENT
  Sex: Male
  Weight: 19.522 kg

DRUGS (1)
  1. CEFDINIR SUSPENSION 250MG/5ML [Suspect]
     Indication: PHARYNGEAL ERYTHEMA
     Route: 048
     Dates: start: 20070324, end: 20070402

REACTIONS (1)
  - PSEUDOMEMBRANOUS COLITIS [None]
